FAERS Safety Report 7973285 (Version 2)
Quarter: 2012Q4

REPORT INFORMATION
  Report Type: 
  Country: US (occurrence: US)
  Receive Date: 20110603
  Receipt Date: 20121119
  Transmission Date: 20130627
  Serious: No
  Sender: FDA-Public Use
  Company Number: US-BAYER-2011-027462

PATIENT
  Age: 62 Year
  Sex: Male
  Weight: 81.63 kg

DRUGS (1)
  1. ALEVE CAPLET/TABLET,MIDOL EXTENDED RELIEF CAPLET [Suspect]
     Indication: GENERAL BODY PAIN
     Dosage: Dose: 2 Caplets as needed. Bottle count 50s
     Route: 048
     Dates: start: 20110308, end: 20110309

REACTIONS (1)
  - Drug ineffective [Unknown]
